FAERS Safety Report 11599434 (Version 1)
Quarter: 2015Q3

REPORT INFORMATION
  Report Type: Spontaneous
  Country: US (occurrence: US)
  Receive Date: 20150916
  Receipt Date: 20150916
  Transmission Date: 20151125
  Serious: Yes (Other)
  Sender: FDA-Public Use
  Company Number: US-ELI_LILLY_AND_COMPANY-US200711001522

PATIENT
  Age: 64 Year
  Sex: Female
  Weight: 66.21 kg

DRUGS (4)
  1. ACTONEL [Concomitant]
     Active Substance: RISEDRONATE SODIUM
  2. FORTEO [Suspect]
     Active Substance: TERIPARATIDE
     Indication: OSTEOPOROSIS
     Dosage: 20 UG, DAILY (1/D)
     Dates: start: 200508, end: 200709
  3. RESTASIS [Concomitant]
     Active Substance: CYCLOSPORINE
  4. RANITIDINE [Concomitant]
     Active Substance: RANITIDINE\RANITIDINE HYDROCHLORIDE

REACTIONS (5)
  - Hepatic cyst [Unknown]
  - Granuloma [Recovering/Resolving]
  - Renal cyst [Unknown]
  - Staphylococcal infection [Unknown]
  - Breast mass [Unknown]

NARRATIVE: CASE EVENT DATE: 2007
